FAERS Safety Report 5249962-3 (Version None)
Quarter: 2007Q1

REPORT INFORMATION
  Report Type: 
  Country: None (occurrence: None)
  Receive Date: 20070228
  Receipt Date: 20060131
  Transmission Date: 20070707
  Serious: No
  Sender: FDA-Public Use
  Company Number: US-GLAXOSMITHKLINE-A0588820A

PATIENT
  Age: 27 Year
  Sex: Female
  Weight: 72.3 kg

DRUGS (2)
  1. LAMICTAL [Suspect]
     Indication: BIPOLAR DISORDER
     Route: 048
     Dates: start: 20050303, end: 20060105
  2. EFFEXOR XR [Concomitant]

REACTIONS (2)
  - ORAL MUCOSAL BLISTERING [None]
  - RASH [None]
